APPROVED DRUG PRODUCT: UNISOM
Active Ingredient: DOXYLAMINE SUCCINATE
Strength: 25MG
Dosage Form/Route: CAPSULE;ORAL
Application: N019440 | Product #001
Applicant: PFIZER LABORATORIES DIV PFIZER INC
Approved: Feb 5, 1986 | RLD: No | RS: No | Type: DISCN